FAERS Safety Report 22253569 (Version 1)
Quarter: 2023Q2

REPORT INFORMATION
  Report Type: Spontaneous
  Country: CN (occurrence: CN)
  Receive Date: 20230426
  Receipt Date: 20230426
  Transmission Date: 20230722
  Serious: Yes (Death, Hospitalization)
  Sender: FDA-Public Use
  Company Number: CN-STRIDES ARCOLAB LIMITED-2023SP005989

PATIENT
  Age: 65 Year
  Sex: Male

DRUGS (1)
  1. TACROLIMUS [Suspect]
     Active Substance: TACROLIMUS
     Indication: Glomerulonephritis membranous
     Dosage: UNK (FK506)
     Route: 048

REACTIONS (9)
  - Renal failure [Fatal]
  - Respiratory failure [Fatal]
  - Hypokalaemia [Fatal]
  - Nocardiosis [Fatal]
  - Septic shock [Fatal]
  - Pneumonia [Fatal]
  - Stenotrophomonas infection [Unknown]
  - Cryptococcosis [Unknown]
  - Off label use [Unknown]
